FAERS Safety Report 17559946 (Version 1)
Quarter: 2020Q1

REPORT INFORMATION
  Report Type: Spontaneous
  Country: US (occurrence: US)
  Receive Date: 20200311
  Receipt Date: 20200311
  Transmission Date: 20200409
  Serious: No
  Sender: FDA-Public Use
  Company Number: None

PATIENT
  Age: 49 Year
  Sex: Female

DRUGS (1)
  1. ZARXIO [Suspect]
     Active Substance: FILGRASTIM-SNDZ
     Indication: OVARIAN DISORDER
     Route: 058
     Dates: start: 201908

REACTIONS (2)
  - Product prescribing issue [None]
  - Manufacturing product shipping issue [None]

NARRATIVE: CASE EVENT DATE: 20200311
